FAERS Safety Report 13933435 (Version 5)
Quarter: 2018Q2

REPORT INFORMATION
  Report Type: Report from Study
  Country: DE (occurrence: DE)
  Receive Date: 20170904
  Receipt Date: 20180604
  Transmission Date: 20180711
  Serious: Yes (Hospitalization, Other)
  Sender: FDA-Public Use
  Company Number: PHHY2017DE129654

PATIENT
  Sex: Female
  Weight: 67 kg

DRUGS (9)
  1. COSENTYX [Suspect]
     Active Substance: SECUKINUMAB
     Dosage: 150 MG, UNK PER APPLICATION
     Route: 065
     Dates: start: 20170606
  2. COSENTYX [Suspect]
     Active Substance: SECUKINUMAB
     Dosage: 150 MG, UNK PER APPLICATION
     Route: 065
     Dates: start: 20170422
  3. COSENTYX [Suspect]
     Active Substance: SECUKINUMAB
     Dosage: 150 MG, UNK PER APPLICATION
     Route: 065
     Dates: start: 20170706
  4. COSENTYX [Suspect]
     Active Substance: SECUKINUMAB
     Dosage: 150 MG, UNK PER APPLICATION
     Route: 065
     Dates: start: 20170506
  5. COSENTYX [Suspect]
     Active Substance: SECUKINUMAB
     Dosage: 150 MG, UNK PER APPLICATION
     Route: 065
     Dates: start: 20170729
  6. COSENTYX [Suspect]
     Active Substance: SECUKINUMAB
     Dosage: 150 MG, UNK PER APPLICATION
     Route: 065
     Dates: start: 20170429
  7. PREDNISONE. [Concomitant]
     Active Substance: PREDNISONE
     Indication: PSORIASIS
     Dosage: 30 MG, QD
     Route: 048
     Dates: start: 20170802
  8. COSENTYX [Suspect]
     Active Substance: SECUKINUMAB
     Indication: PSORIATIC ARTHROPATHY
     Dosage: 150 MG, UNK PER APPLICATION
     Route: 065
     Dates: start: 20170408
  9. COSENTYX [Suspect]
     Active Substance: SECUKINUMAB
     Dosage: 150 MG, UNK PER APPLICATION
     Route: 065
     Dates: start: 20170415

REACTIONS (3)
  - Rash pustular [Not Recovered/Not Resolved]
  - Skin fissures [Not Recovered/Not Resolved]
  - Onychomadesis [Not Recovered/Not Resolved]

NARRATIVE: CASE EVENT DATE: 20170513
